FAERS Safety Report 24451628 (Version 1)
Quarter: 2024Q4

REPORT INFORMATION
  Report Type: Spontaneous
  Country: GB (occurrence: GB)
  Receive Date: 20241017
  Receipt Date: 20241017
  Transmission Date: 20250114
  Serious: Yes (Other)
  Sender: PFIZER
  Company Number: None

PATIENT
  Age: 67 Year

DRUGS (1)
  1. DOCETAXEL [Suspect]
     Active Substance: DOCETAXEL
     Indication: Chemotherapy
     Dosage: UNK
     Dates: start: 20241014

REACTIONS (3)
  - Hot flush [Recovered/Resolved]
  - Chest discomfort [Unknown]
  - Back pain [Unknown]
